FAERS Safety Report 9581413 (Version 1)
Quarter: 2013Q4

REPORT INFORMATION
  Report Type: Spontaneous
  Country: FR (occurrence: FR)
  Receive Date: 20131002
  Receipt Date: 20131002
  Transmission Date: 20140711
  Serious: Yes (Hospitalization)
  Sender: FDA-Public Use
  Company Number: FR-ASTRAZENECA-2013SE71597

PATIENT
  Age: 24875 Day
  Sex: Male

DRUGS (2)
  1. CRESTOR [Suspect]
     Indication: DYSLIPIDAEMIA
     Route: 048
     Dates: start: 2007, end: 2013
  2. MICARDIS [Concomitant]
     Indication: HYPERTENSION
     Route: 048

REACTIONS (1)
  - Tendon rupture [Not Recovered/Not Resolved]
